FAERS Safety Report 8771750 (Version 2)
Quarter: 2012Q4

REPORT INFORMATION
  Report Type: 
  Country: US (occurrence: US)
  Receive Date: 20120830
  Receipt Date: 20121008
  Transmission Date: 20130627
  Serious: Yes (Death)
  Sender: FDA-Public Use
  Company Number: US-ELI_LILLY_AND_COMPANY-US201208009119

PATIENT
  Age: 91 Year
  Sex: Male
  Weight: 53.52 kg

DRUGS (6)
  1. FORTEO [Suspect]
     Indication: COMPRESSION FRACTURE
     Dosage: 20 ug, qd
     Dates: start: 20120529
  2. LEVOTHYROXINE [Concomitant]
     Dosage: UNK
  3. ASA [Concomitant]
     Dosage: UNK
  4. CALCIUM [Concomitant]
     Dosage: UNK
  5. ROBAXIN [Concomitant]
     Dosage: UNK
  6. MULTIVITAMIN [Concomitant]
     Dosage: UNK

REACTIONS (4)
  - Hypoxia [Fatal]
  - Cardiac failure congestive [Fatal]
  - Coronary artery disease [Fatal]
  - Arteriosclerosis [Fatal]
